FAERS Safety Report 5267278-6 (Version None)
Quarter: 2007Q1

REPORT INFORMATION
  Report Type: 
  Country: None (occurrence: None)
  Receive Date: 20070316
  Receipt Date: 20070313
  Transmission Date: 20070707
  Serious: Yes (Hospitalization)
  Sender: FDA-Public Use
  Company Number: US019477

PATIENT
  Age: 54 Year
  Sex: Male
  Weight: 113.6 kg

DRUGS (4)
  1. DEXEDRINE [Suspect]
     Indication: ATTENTION DEFICIT/HYPERACTIVITY DISORDER
     Dosage: 40MG PER DAY
     Route: 048
     Dates: start: 19920101
  2. PROVIGIL [Suspect]
     Dosage: 200MG PER DAY
     Route: 048
     Dates: start: 20061001
  3. CYMBALTA [Concomitant]
  4. GABAPENTIN [Concomitant]

REACTIONS (10)
  - CARDIOGENIC SHOCK [None]
  - COMA [None]
  - DIZZINESS [None]
  - INFLUENZA LIKE ILLNESS [None]
  - MYOCARDIAL INFARCTION [None]
  - PAIN [None]
  - PAIN IN JAW [None]
  - RENAL FAILURE [None]
  - SPEECH DISORDER [None]
  - VOMITING [None]
